FAERS Safety Report 8288362-9 (Version None)
Quarter: 2012Q2

REPORT INFORMATION
  Report Type: 
  Country: None (occurrence: None)
  Receive Date: 20120416
  Receipt Date: 20120411
  Transmission Date: 20120825
  Serious: Yes (Other)
  Sender: FDA-Public Use
  Company Number: US-PFIZER INC-2012090699

PATIENT
  Sex: Female
  Weight: 63.492 kg

DRUGS (3)
  1. EFFEXOR [Suspect]
     Indication: HOT FLUSH
     Dosage: 37.5 MG, DAILY
     Dates: start: 20120405, end: 20120409
  2. EFFEXOR [Suspect]
     Dosage: 37.5 MG, 2X/DAY
     Dates: start: 20120410, end: 20120410
  3. METHIMAZOLE [Concomitant]
     Indication: HYPERTHYROIDISM
     Dosage: 10 MG, DAILY

REACTIONS (3)
  - ASPHYXIA [None]
  - NAUSEA [None]
  - DIZZINESS [None]
